FAERS Safety Report 5145144-4 (Version None)
Quarter: 2006Q4

REPORT INFORMATION
  Report Type: 
  Country: None (occurrence: None)
  Receive Date: 20061107
  Receipt Date: 20061025
  Transmission Date: 20070319
  Serious: Yes (Life-Threatening, Hospitalization, Other)
  Sender: FDA-Public Use
  Company Number: GB-ELI_LILLY_AND_COMPANY-GB200610004545

PATIENT
  Age: 69 Year
  Sex: Female

DRUGS (8)
  1. FORTEO [Suspect]
     Dosage: 20 UG, UNK
     Route: 058
     Dates: start: 20050301
  2. ACETYLSALICYLIC ACID SRT [Concomitant]
     Dosage: 75 MG, UNK
     Route: 048
     Dates: start: 20060701
  3. CALCICHEW-D3 [Concomitant]
     Dosage: 2 D/F, DAILY (1/D)
     Route: 048
     Dates: start: 20060701
  4. PERINDOPRIL ERBUMINE [Concomitant]
     Dosage: 2 MG, UNK
     Dates: start: 20060701
  5. GLYCERYL TRINITRATE [Concomitant]
     Dosage: UNK, AS NEEDED
     Route: 048
     Dates: start: 20060701
  6. SYMBICORT                               /CAN/ [Concomitant]
     Dosage: UNK, UNK
     Route: 055
     Dates: start: 20060701
  7. VENTOLIN [Concomitant]
     Dosage: 2 D/F, AS NEEDED
     Route: 055
     Dates: start: 20060701
  8. SIMVASTATIN [Concomitant]
     Dosage: 40 MG, UNK
     Route: 048
     Dates: start: 20060701

REACTIONS (1)
  - MYOCARDIAL INFARCTION [None]
